FAERS Safety Report 18477181 (Version 1)
Quarter: 2020Q4

REPORT INFORMATION
  Report Type: Spontaneous
  Country: US (occurrence: US)
  Receive Date: 20201107
  Receipt Date: 20201107
  Transmission Date: 20210114
  Serious: No
  Sender: FDA-Public Use
  Company Number: US-PERRIGO-20US010535

PATIENT
  Age: 58 Year
  Sex: Female
  Weight: 43.99 kg

DRUGS (2)
  1. ERYTHROMYCIN. [Suspect]
     Active Substance: ERYTHROMYCIN
     Indication: CHEMICAL BURNS OF EYE
     Dosage: 1 APPLICATION, BID
     Route: 047
     Dates: start: 20200715, end: 20200717
  2. MOXIFLOXACIN. [Concomitant]
     Active Substance: MOXIFLOXACIN
     Indication: CHEMICAL BURNS OF EYE
     Dosage: UNK
     Route: 047
     Dates: start: 20200715

REACTIONS (4)
  - Eye irritation [Not Recovered/Not Resolved]
  - Superficial injury of eye [Recovered/Resolved]
  - Eye pain [Not Recovered/Not Resolved]
  - Off label use [Recovered/Resolved]

NARRATIVE: CASE EVENT DATE: 20200715
